FAERS Safety Report 10248317 (Version 2)
Quarter: 2014Q2

REPORT INFORMATION
  Report Type: Spontaneous
  Country: GB (occurrence: GB)
  Receive Date: 20140620
  Receipt Date: 20140624
  Transmission Date: 20141212
  Serious: Yes (Life-Threatening, Hospitalization, Disabling, Other)
  Sender: FDA-Public Use
  Company Number: GB-DRREDDYS-GER/UKI/14/0041186

PATIENT
  Age: 41 Year
  Sex: Male
  Weight: 119 kg

DRUGS (9)
  1. SUMATRIPTAN [Suspect]
     Indication: MIGRAINE
     Dosage: 6MG/0.5ML
     Dates: start: 200409, end: 20140507
  2. DICLOFENAC [Suspect]
     Indication: BACK PAIN
     Route: 048
     Dates: start: 2004
  3. BENDROFLUMETHIAZIDE [Concomitant]
     Indication: HYPERTENSION
     Route: 048
     Dates: start: 201310
  4. CLENIL MODULITE [Concomitant]
     Indication: ASTHMA
     Route: 055
     Dates: start: 2012
  5. DOXAZOSIN [Concomitant]
     Indication: HYPERTENSION
     Route: 048
     Dates: start: 2012
  6. OMEPRAZOLE [Concomitant]
     Indication: GASTROOESOPHAGEAL REFLUX DISEASE
     Route: 048
     Dates: start: 201305
  7. SALBUTAMOL [Concomitant]
     Indication: PRODUCT USED FOR UNKNOWN INDICATION
     Route: 055
     Dates: start: 201306
  8. SUMATRIPTAN [Concomitant]
     Indication: PRODUCT USED FOR UNKNOWN INDICATION
  9. CETIRIZINE [Concomitant]
     Indication: SEASONAL ALLERGY
     Route: 048
     Dates: start: 201305

REACTIONS (4)
  - Hypertension [Recovering/Resolving]
  - Cerebral haemorrhage [Recovering/Resolving]
  - Aphasia [Recovering/Resolving]
  - Haemorrhagic stroke [Recovering/Resolving]
